FAERS Safety Report 10692335 (Version 1)
Quarter: 2015Q1

REPORT INFORMATION
  Report Type: Spontaneous
  Country: US (occurrence: US)
  Receive Date: 20150106
  Receipt Date: 20150106
  Transmission Date: 20150720
  Serious: No
  Sender: FDA-Public Use
  Company Number: US-BIOGENIDEC-2015BI000627

PATIENT
  Age: 33 Year
  Sex: Female

DRUGS (1)
  1. TECFIDERA [Suspect]
     Active Substance: DIMETHYL FUMARATE
     Indication: MULTIPLE SCLEROSIS
     Route: 048
     Dates: start: 20141213

REACTIONS (13)
  - Chest discomfort [Recovered/Resolved]
  - Headache [Not Recovered/Not Resolved]
  - Abdominal distension [Recovered/Resolved]
  - Gastrointestinal disorder [Not Recovered/Not Resolved]
  - Abdominal rigidity [Recovered/Resolved]
  - Feeling hot [Recovered/Resolved]
  - Nausea [Not Recovered/Not Resolved]
  - Chest pain [Recovered/Resolved]
  - Abdominal discomfort [Recovered/Resolved]
  - Migraine [Recovered/Resolved]
  - Abdominal pain upper [Recovered/Resolved]
  - Feeling abnormal [Recovered/Resolved]
  - Abdominal pain [Recovered/Resolved]

NARRATIVE: CASE EVENT DATE: 20141224
